FAERS Safety Report 21144123 (Version 1)
Quarter: 2022Q3

REPORT INFORMATION
  Report Type: Report from Study
  Country: MY (occurrence: MY)
  Receive Date: 20220728
  Receipt Date: 20220728
  Transmission Date: 20221027
  Serious: Yes (Other)
  Sender: FDA-Public Use
  Company Number: MY-NOVARTISPH-NVSC2019MY069102

PATIENT
  Sex: Male

DRUGS (2)
  1. COSENTYX [Suspect]
     Active Substance: SECUKINUMAB
     Indication: Psoriatic arthropathy
     Dosage: 300 MG
     Route: 058
     Dates: start: 20180109
  2. COSENTYX [Suspect]
     Active Substance: SECUKINUMAB
     Dosage: 300 MG
     Route: 058

REACTIONS (13)
  - Hyperkalaemia [Not Recovered/Not Resolved]
  - Hyperaldosteronism [Unknown]
  - Hypertension [Not Recovered/Not Resolved]
  - Glomerular filtration rate decreased [Unknown]
  - Proteinuria [Unknown]
  - Blood uric acid increased [Unknown]
  - Haematoma [Recovering/Resolving]
  - Injection site swelling [Recovering/Resolving]
  - COVID-19 [Recovered/Resolved]
  - Oropharyngeal pain [Recovering/Resolving]
  - Dizziness [Recovering/Resolving]
  - Lethargy [Recovering/Resolving]
  - Injection site haemorrhage [Unknown]
